FAERS Safety Report 6273373-5 (Version None)
Quarter: 2009Q3

REPORT INFORMATION
  Report Type: 
  Country: None (occurrence: None)
  Receive Date: 20090715
  Receipt Date: 20090701
  Transmission Date: 20100115
  Serious: Yes (Hospitalization)
  Sender: FDA-Public Use
  Company Number: 1000005568

PATIENT
  Age: 69 Year
  Sex: Female
  Weight: 37 kg

DRUGS (5)
  1. ESCITALOPRAM [Suspect]
     Indication: DEPRESSION
     Dosage: 20 MG (20 MG, 1 IN 1 D) ORAL
     Route: 048
     Dates: start: 20080923, end: 20090330
  2. LEXOMIL [Concomitant]
  3. THERALENE [Concomitant]
  4. PARIET [Concomitant]
  5. SPASFON LYOC [Concomitant]

REACTIONS (5)
  - ABDOMINAL PAIN [None]
  - CONFUSIONAL STATE [None]
  - DISORIENTATION [None]
  - MANIA [None]
  - WEIGHT DECREASED [None]
